FAERS Safety Report 21853446 (Version 1)
Quarter: 2023Q1

REPORT INFORMATION
  Report Type: Spontaneous
  Country: US (occurrence: None)
  Receive Date: 20230111
  Receipt Date: 20230111
  Transmission Date: 20230418
  Serious: Yes (Other)
  Sender: FDA-Public Use
  Company Number: None

PATIENT
  Age: 35 Year
  Sex: Male
  Weight: 83.43 kg

DRUGS (6)
  1. GABAPENTIN [Suspect]
     Active Substance: GABAPENTIN
  2. GABAPENTIN [Concomitant]
     Active Substance: GABAPENTIN
     Dates: start: 20200219, end: 20230102
  3. ESCITALOPRAM [Concomitant]
     Active Substance: ESCITALOPRAM OXALATE
     Dates: start: 20190729, end: 20221214
  4. MIRTAZAPINE [Concomitant]
     Active Substance: MIRTAZAPINE
     Dates: start: 20191217, end: 20221216
  5. CHLORTHALIDONE [Concomitant]
     Active Substance: CHLORTHALIDONE
     Dates: start: 20221019
  6. HERBALS\MITRAGYNINE [Concomitant]
     Active Substance: HERBALS\MITRAGYNINE
     Dates: end: 20221215

REACTIONS (3)
  - Suicidal ideation [None]
  - Condition aggravated [None]
  - Paranoia [None]

NARRATIVE: CASE EVENT DATE: 20230103
